FAERS Safety Report 23444095 (Version 2)
Quarter: 2024Q1

REPORT INFORMATION
  Report Type: Spontaneous
  Country: US (occurrence: US)
  Receive Date: 20240125
  Receipt Date: 20240314
  Transmission Date: 20240410
  Serious: Yes (Hospitalization)
  Sender: FDA-Public Use
  Company Number: US-TEVA-VS-3136324

PATIENT
  Age: 66 Year
  Sex: Female

DRUGS (5)
  1. PREDNISONE [Suspect]
     Active Substance: PREDNISONE
     Indication: Rash pruritic
     Route: 048
  2. BETAMETHASONE [Concomitant]
     Active Substance: BETAMETHASONE\BETAMETHASONE DIPROPIONATE
     Indication: Rash pruritic
     Route: 065
  3. LANTUS [Suspect]
     Active Substance: INSULIN GLARGINE
     Indication: Diabetic ketoacidosis
     Dosage: 42 UNITS
     Route: 065
  4. INSULIN LISPRO [Suspect]
     Active Substance: INSULIN LISPRO
     Indication: Diabetic ketoacidosis
     Dosage: DOSAGE: 12 U 12 UNITS; PREMEAL
     Route: 065
  5. PEMBROLIZUMAB [Suspect]
     Active Substance: PEMBROLIZUMAB
     Indication: Non-small cell lung cancer metastatic
     Route: 065

REACTIONS (5)
  - Fulminant type 1 diabetes mellitus [Unknown]
  - Restlessness [Unknown]
  - Diabetic ketoacidosis [Unknown]
  - Anxiety [Unknown]
  - Drug ineffective [Unknown]
